FAERS Safety Report 25581058 (Version 1)
Quarter: 2025Q3

REPORT INFORMATION
  Report Type: Spontaneous
  Country: US (occurrence: US)
  Receive Date: 20250718
  Receipt Date: 20250718
  Transmission Date: 20251020
  Serious: No
  Sender: NOVO NORDISK
  Company Number: US-NOVOPROD-1455321

PATIENT
  Age: 55 Year
  Sex: Female

DRUGS (1)
  1. WEGOVY [Suspect]
     Active Substance: SEMAGLUTIDE
     Indication: Weight control
     Dosage: 0.25 MG, QW
     Route: 058
     Dates: start: 202503

REACTIONS (6)
  - Hunger [Unknown]
  - Injection site haemorrhage [Unknown]
  - Therapeutic response shortened [Unknown]
  - Incorrect dose administered by device [Unknown]
  - Off label use [Unknown]
  - Device leakage [Unknown]
